FAERS Safety Report 8777411 (Version 1)
Quarter: 2012Q4

REPORT INFORMATION
  Report Type: 
  Country: US (occurrence: US)
  Receive Date: 20120911
  Receipt Date: 20120911
  Transmission Date: 20130627
  Serious: Yes (Other)
  Sender: FDA-Public Use
  Company Number: US-JNJFOC-20120902866

PATIENT

DRUGS (5)
  1. DARUNAVIR [Suspect]
     Indication: HIV INFECTION
     Route: 048
  2. RALTEGRAVIR [Suspect]
     Indication: HIV INFECTION
     Route: 065
  3. RITONAVIR [Suspect]
     Indication: HIV INFECTION
     Route: 065
  4. TENOFOVIR [Suspect]
     Indication: HIV INFECTION
     Route: 065
  5. EMTRICITABINE [Suspect]
     Indication: HIV INFECTION
     Route: 065

REACTIONS (1)
  - Nephrolithiasis [Unknown]
